FAERS Safety Report 9166535 (Version 1)
Quarter: 2013Q1

REPORT INFORMATION
  Report Type: Spontaneous
  Country: GB (occurrence: GB)
  Receive Date: 20130315
  Receipt Date: 20130315
  Transmission Date: 20140127
  Serious: Yes (Life-Threatening)
  Sender: FDA-Public Use
  Company Number: GB-MYLANLABS-2013S1005138

PATIENT
  Age: 17 Month
  Sex: 0

DRUGS (2)
  1. KETAMINE [Suspect]
     Indication: INDUCTION OF ANAESTHESIA
     Route: 065
  2. ROCURONIUM BROMIDE [Concomitant]
     Route: 065

REACTIONS (2)
  - Cardiac arrest [Recovering/Resolving]
  - Bradycardia [Recovered/Resolved]
